FAERS Safety Report 4619390-X (Version None)
Quarter: 2005Q2

REPORT INFORMATION
  Report Type: 
  Country: None (occurrence: None)
  Receive Date: 20050321
  Receipt Date: 20040330
  Transmission Date: 20051028
  Serious: Yes (Other)
  Sender: FDA-Public Use
  Company Number: 2004-04-0060

PATIENT
  Sex: Male
  Weight: 72.5755 kg

DRUGS (2)
  1. PEG-INTRON (PEGINTERFERON ALFA-2B) INJECTABLE POWDER [Suspect]
     Indication: HEPATITIS C
     Dosage: SUBCUTANEOUS; 2 DOSES
     Route: 058
  2. REBETOL [Suspect]
     Indication: HEPATITIS C
     Dosage: ORAL
     Route: 048

REACTIONS (3)
  - ANGER [None]
  - FATIGUE [None]
  - HOMICIDAL IDEATION [None]
